FAERS Safety Report 8277012-3 (Version None)
Quarter: 2012Q2

REPORT INFORMATION
  Report Type: 
  Country: None (occurrence: None)
  Receive Date: 20120412
  Receipt Date: 20120403
  Transmission Date: 20120825
  Serious: Yes (Other)
  Sender: FDA-Public Use
  Company Number: US-BAYER-2012-033510

PATIENT
  Age: 67 Year
  Sex: Female
  Weight: 104 kg

DRUGS (6)
  1. ASPIRIN [Suspect]
     Indication: ISCHAEMIC HEART DISEASE PROPHYLAXIS
     Dosage: 4 DF (324 MG), BID
     Route: 048
     Dates: start: 19960101, end: 20100623
  2. NAPROXEN (ALEVE) [Suspect]
     Dosage: 2 DF, BID
     Route: 048
     Dates: start: 20120331
  3. POTASSIUM [Concomitant]
  4. ANESTOL [Concomitant]
  5. VITAMIN D [Concomitant]
  6. DIAZEPAM [Concomitant]

REACTIONS (4)
  - DYSPNOEA [None]
  - WHEEZING [None]
  - CARDIAC DISCOMFORT [None]
  - NO ADVERSE EVENT [None]
